FAERS Safety Report 23390947 (Version 3)
Quarter: 2024Q1

REPORT INFORMATION
  Report Type: Report from Study
  Country: CO (occurrence: CO)
  Receive Date: 20240111
  Receipt Date: 20240116
  Transmission Date: 20240410
  Serious: Yes (Other)
  Sender: FDA-Public Use
  Company Number: CO-ASTELLAS-2024US000850

PATIENT
  Age: 72 Year
  Sex: Male
  Weight: 63 kg

DRUGS (1)
  1. ENZALUTAMIDE [Suspect]
     Active Substance: ENZALUTAMIDE
     Indication: Carcinoid tumour of the prostate
     Route: 048
     Dates: start: 20211119

REACTIONS (2)
  - Delirium [Unknown]
  - Seizure [Unknown]

NARRATIVE: CASE EVENT DATE: 20240102
